FAERS Safety Report 7070484-1 (Version None)
Quarter: 2010Q4

REPORT INFORMATION
  Report Type: 
  Country: None (occurrence: None)
  Receive Date: 20101027
  Receipt Date: 20101027
  Transmission Date: 20110411
  Serious: Yes (Other)
  Sender: FDA-Public Use
  Company Number: None

PATIENT
  Sex: Female
  Weight: 62.5964 kg

DRUGS (2)
  1. RECLAST [Suspect]
     Indication: OSTEOPOROSIS
     Dosage: 100 ML ONCE PER YEAR
     Dates: start: 20090307, end: 20090307
  2. RECLAST [Suspect]
     Indication: OSTEOPOROSIS
     Dosage: 100 ML ONCE PER YEAR
     Dates: start: 20100310, end: 20100310

REACTIONS (1)
  - TRICHORRHEXIS [None]
